FAERS Safety Report 6283204-5 (Version None)
Quarter: 2009Q3

REPORT INFORMATION
  Report Type: 
  Country: None (occurrence: None)
  Receive Date: 20090724
  Receipt Date: 20090720
  Transmission Date: 20100115
  Serious: Yes (Hospitalization, Other)
  Sender: FDA-Public Use
  Company Number: US-ROXANE LABORATORIES, INC.-2009-RO-00727RO

PATIENT
  Age: 51 Year
  Sex: Female

DRUGS (7)
  1. PREDNISONE TAB [Suspect]
     Indication: SYSTEMIC LUPUS ERYTHEMATOSUS
     Dosage: 20 MG
  2. PREDNISONE TAB [Suspect]
  3. RITUXIMAB [Suspect]
     Indication: SYSTEMIC LUPUS ERYTHEMATOSUS
  4. VANCOMYCIN [Concomitant]
     Indication: PNEUMONIA
  5. CEFEPIME [Concomitant]
     Indication: PNEUMONIA
  6. CIPROFLOXACIN [Concomitant]
     Indication: PNEUMONIA
  7. TRIMETHOPRIM + SULFAMETHOXAZOLE [Concomitant]
     Indication: PNEUMOCYSTIS JIROVECI PNEUMONIA

REACTIONS (3)
  - ACUTE RESPIRATORY FAILURE [None]
  - PNEUMOCYSTIS JIROVECI PNEUMONIA [None]
  - SYSTEMIC LUPUS ERYTHEMATOSUS [None]
